FAERS Safety Report 16140698 (Version 1)
Quarter: 2019Q1

REPORT INFORMATION
  Report Type: Spontaneous
  Country: US (occurrence: US)
  Receive Date: 20190226
  Receipt Date: 20190226
  Transmission Date: 20190418
  Serious: No
  Sender: FDA-Public Use
  Company Number: None

PATIENT
  Sex: Female

DRUGS (1)
  1. CYCLOPHOSPHAMIDE 50MG ROXANE [Suspect]
     Active Substance: CYCLOPHOSPHAMIDE
     Indication: ACQUIRED HAEMOPHILIA
     Route: 048
     Dates: start: 20190124

REACTIONS (10)
  - Burning sensation [None]
  - Bladder irritation [None]
  - Hyperhidrosis [None]
  - Vision blurred [None]
  - Anger [None]
  - Raynaud^s phenomenon [None]
  - Mania [None]
  - Euphoric mood [None]
  - Dermatitis [None]
  - Eye swelling [None]
